FAERS Safety Report 11865056 (Version 1)
Quarter: 2015Q4

REPORT INFORMATION
  Report Type: Report from Study
  Country: US (occurrence: US)
  Receive Date: 20151223
  Receipt Date: 20151223
  Transmission Date: 20160305
  Serious: Yes (Hospitalization, Other)
  Sender: FDA-Public Use
  Company Number: US-ABBVIE-15K-163-1521040-00

PATIENT
  Age: 69 Year
  Sex: Female

DRUGS (6)
  1. HUMIRA [Suspect]
     Active Substance: ADALIMUMAB
     Indication: PSORIATIC ARTHROPATHY
     Route: 058
     Dates: start: 2014, end: 201510
  2. FOLIC ACID. [Concomitant]
     Active Substance: FOLIC ACID
     Indication: PRODUCT USED FOR UNKNOWN INDICATION
  3. METHOTREXATE [Concomitant]
     Active Substance: METHOTREXATE
     Indication: PRODUCT USED FOR UNKNOWN INDICATION
  4. CALCIUM + VITAMIN D [Concomitant]
     Active Substance: CALCIUM\VITAMIN D
     Indication: PRODUCT USED FOR UNKNOWN INDICATION
  5. OMEGA 3 [Concomitant]
     Active Substance: OMEGA-3 FATTY ACIDS
     Indication: PRODUCT USED FOR UNKNOWN INDICATION
  6. ZANITIDINE [Concomitant]
     Indication: PRODUCT USED FOR UNKNOWN INDICATION

REACTIONS (7)
  - Costochondritis [Unknown]
  - Oesophageal spasm [Unknown]
  - Hypertension [Recovering/Resolving]
  - Rhinorrhoea [Not Recovered/Not Resolved]
  - Chest pain [Recovered/Resolved]
  - Cholelithiasis [Recovered/Resolved]
  - Nasopharyngitis [Not Recovered/Not Resolved]

NARRATIVE: CASE EVENT DATE: 20151015
